FAERS Safety Report 25899198 (Version 1)
Quarter: 2025Q4

REPORT INFORMATION
  Report Type: Spontaneous
  Country: EU (occurrence: EU)
  Receive Date: 20251009
  Receipt Date: 20251009
  Transmission Date: 20260118
  Serious: Yes (Other)
  Sender: AUROBINDO
  Company Number: EU-ABBVIE-6474041

PATIENT
  Age: 72 Year
  Sex: Male

DRUGS (8)
  1. QUETIAPINE [Suspect]
     Active Substance: QUETIAPINE
     Indication: Product used for unknown indication
     Dosage: UNK
     Route: 065
  2. CLOZAPINE [Suspect]
     Active Substance: CLOZAPINE
     Indication: Product used for unknown indication
     Dosage: UNK
     Route: 065
  3. RIVASTIGMINE [Suspect]
     Active Substance: RIVASTIGMINE
     Indication: Product used for unknown indication
     Dosage: UNK
     Route: 065
  4. FOSCARBIDOPA\FOSLEVODOPA [Suspect]
     Active Substance: FOSCARBIDOPA\FOSLEVODOPA
     Indication: Parkinson^s disease
     Dosage: UNK (CRN: 2.0 ML/H; ED: 0.5 ML  )
     Route: 058
     Dates: end: 202403
  5. CARBIDOPA\LEVODOPA [Suspect]
     Active Substance: CARBIDOPA\LEVODOPA
     Indication: Parkinson^s disease
     Dosage: UNK (MD: 6.0 ML; CRT: 3.7 ML/H; ED: 1.5)
     Dates: start: 20250506
  6. BISOPROLOL [Concomitant]
     Active Substance: BISOPROLOL
     Indication: Product used for unknown indication
     Dosage: UNK
     Route: 065
  7. MARCUMAR [Concomitant]
     Active Substance: PHENPROCOUMON
     Indication: Product used for unknown indication
     Dosage: UNK
     Route: 065
  8. ENTACAPONE [Concomitant]
     Active Substance: ENTACAPONE
     Indication: Parkinson^s disease
     Dosage: 200 MILLIGRAM (1 TABLET AROUND 22:30 AND AROUND 3:00)
     Route: 065

REACTIONS (17)
  - Hallucination [Recovered/Resolved]
  - Dopamine supersensitivity psychosis [Unknown]
  - Intestinal obstruction [Unknown]
  - Infusion site infection [Unknown]
  - Cognitive disorder [Unknown]
  - Paradoxical drug reaction [Unknown]
  - Neurogenic bowel [Unknown]
  - Aggression [Recovered/Resolved]
  - Disorientation [Unknown]
  - On and off phenomenon [Unknown]
  - Parkinsonism [Recovered/Resolved]
  - Anxiety [Recovered/Resolved]
  - Restlessness [Unknown]
  - Tremor [Recovered/Resolved]
  - Executive dysfunction [Unknown]
  - Mental disorder [Unknown]
  - Constipation [Unknown]

NARRATIVE: CASE EVENT DATE: 20250101
